FAERS Safety Report 18985315 (Version 1)
Quarter: 2021Q1

REPORT INFORMATION
  Report Type: Spontaneous
  Country: FR (occurrence: FR)
  Receive Date: 20210309
  Receipt Date: 20210309
  Transmission Date: 20210420
  Serious: Yes (Other)
  Sender: FDA-Public Use
  Company Number: FR-ABBVIE-20P-056-3502111-00

PATIENT
  Age: 84 Year
  Sex: Male

DRUGS (1)
  1. ENANTONE LP [Suspect]
     Active Substance: LEUPROLIDE ACETATE
     Indication: PROSTATE CANCER
     Dosage: 30 MILLIGRAM, Q6MONTHS
     Route: 065
     Dates: start: 202002

REACTIONS (7)
  - Pain [Not Recovered/Not Resolved]
  - Product dose omission issue [Not Recovered/Not Resolved]
  - Hot flush [Not Recovered/Not Resolved]
  - Urinary retention [Unknown]
  - Erectile dysfunction [Unknown]
  - Loss of libido [Not Recovered/Not Resolved]
  - Libido decreased [Unknown]
